FAERS Safety Report 4831239-9 (Version None)
Quarter: 2005Q4

REPORT INFORMATION
  Report Type: 
  Country: None (occurrence: None)
  Receive Date: 20051115
  Receipt Date: 20051030
  Transmission Date: 20060501
  Serious: Yes (Other)
  Sender: FDA-Public Use
  Company Number: PHEH2005US12058

PATIENT
  Sex: Male

DRUGS (1)
  1. TEGRETOL [Suspect]
     Route: 048
     Dates: start: 19950101

REACTIONS (4)
  - OSTEOPENIA [None]
  - PAIN [None]
  - SPINAL FRACTURE [None]
  - URINE CALCIUM INCREASED [None]
